FAERS Safety Report 17448170 (Version 1)
Quarter: 2020Q1

REPORT INFORMATION
  Report Type: Spontaneous
  Country: GB (occurrence: GB)
  Receive Date: 20200222
  Receipt Date: 20200222
  Transmission Date: 20200409
  Serious: Yes (Death, Hospitalization)
  Sender: FDA-Public Use
  Company Number: NVSC2020GB044288

PATIENT
  Age: 16 Year
  Sex: Male
  Weight: 54 kg

DRUGS (8)
  1. VIRAZOLE [Suspect]
     Active Substance: RIBAVIRIN
     Dosage: 860 MG (X1)
     Route: 065
     Dates: start: 20061219, end: 20061219
  2. GENTAMICIN. [Concomitant]
     Active Substance: GENTAMICIN
     Indication: PRODUCT USED FOR UNKNOWN INDICATION
     Dosage: UNK
     Route: 065
  3. VIRAZOLE [Suspect]
     Active Substance: RIBAVIRIN
     Indication: RESPIRATION ABNORMAL
     Dosage: 1800 MG (X1)
     Route: 065
     Dates: start: 20061218, end: 20061218
  4. SEPTRIN [Concomitant]
     Active Substance: SULFAMETHOXAZOLE\TRIMETHOPRIM
     Indication: PRODUCT USED FOR UNKNOWN INDICATION
     Dosage: UNK
     Route: 065
  5. MEROPENEM. [Concomitant]
     Active Substance: MEROPENEM
     Indication: PRODUCT USED FOR UNKNOWN INDICATION
     Dosage: UNK
     Route: 065
  6. CEFUROXIME. [Suspect]
     Active Substance: CEFUROXIME
     Indication: PRODUCT USED FOR UNKNOWN INDICATION
     Dosage: UNK
     Route: 065
  7. CLARITHROMYCIN. [Interacting]
     Active Substance: CLARITHROMYCIN
     Indication: PRODUCT USED FOR UNKNOWN INDICATION
     Dosage: UNK
     Route: 065
  8. PREDNISOLONE. [Interacting]
     Active Substance: PREDNISOLONE
     Indication: PRODUCT USED FOR UNKNOWN INDICATION
     Dosage: UNK
     Route: 065

REACTIONS (11)
  - Pleural effusion [Fatal]
  - Off label use [Unknown]
  - Lung disorder [Fatal]
  - Pneumothorax [Fatal]
  - Oedema peripheral [Fatal]
  - Multiple organ dysfunction syndrome [Fatal]
  - Viral infection [Fatal]
  - Lower respiratory tract inflammation [Fatal]
  - Death [Fatal]
  - Pallor [Fatal]
  - Haemophagocytic lymphohistiocytosis [Fatal]

NARRATIVE: CASE EVENT DATE: 20061220
